FAERS Safety Report 6249996-6 (Version None)
Quarter: 2009Q2

REPORT INFORMATION
  Report Type: 
  Country: None (occurrence: None)
  Receive Date: 20090625
  Receipt Date: 20090610
  Transmission Date: 20091009
  Serious: Yes (Life-Threatening, Hospitalization, Other)
  Sender: FDA-Public Use
  Company Number: DSJ-2009-05269

PATIENT
  Age: 84 Year
  Sex: Male
  Weight: 59 kg

DRUGS (11)
  1. OLMESARTAN MEDOXOMIL [Suspect]
     Indication: HYPERTENSION
     Dosage: 40 MG (1 IN 1 D), PER ORAL
     Route: 048
     Dates: start: 20060101, end: 20090327
  2. CARVEDILOL [Suspect]
     Dosage: 5 MG (2.5 MG, 2 IN 1 D), PER ORAL
     Route: 048
     Dates: end: 20090327
  3. MIRIDACIN (PROGLUMETACIN) (TABLET) (PROGLUMETACIN) [Suspect]
     Dosage: 270 MG (90 MG, 3 IN 1 D), PER ORAL
     Route: 048
     Dates: start: 20090310, end: 20090327
  4. CALBLOCK (AZELNIDIPINE) (TABLET) (AZELNIDIPINE) [Concomitant]
  5. TENAXIL (INDAPAMIDE) (TABLET) (INDAPAMIDE) [Concomitant]
  6. WYTENS (GUANABENZ ACETATE) (TABLET) (GUANABENZ ACETATE) [Concomitant]
  7. EPADEL S (ETHYL ICOSAPENTATE) (TABLET) (ETHYL ICOSAPENTATE) [Concomitant]
  8. MAGMITT (MAGNESIUM OXIDE) (TABLET) (MAGNESIUM OXIDE) [Concomitant]
  9. JEOASE (PROTEASE) (TABLET) (PROTEASE) [Concomitant]
  10. ALANTA (ALDIOXA, SIMALDRATE) (TABLET) (ALDIOXA, SIMALDRATE) [Concomitant]
  11. TAKEPRON (LANSOPRAZOLE) (TABLET) (LANSOPRAZOLE) [Concomitant]

REACTIONS (6)
  - BRADYCARDIA [None]
  - DIALYSIS [None]
  - FALL [None]
  - HYPERKALAEMIA [None]
  - RENAL FAILURE [None]
  - SPINAL COMPRESSION FRACTURE [None]
